FAERS Safety Report 7535284-4 (Version None)
Quarter: 2011Q2

REPORT INFORMATION
  Report Type: 
  Country: None (occurrence: None)
  Receive Date: 20110609
  Receipt Date: 20080130
  Transmission Date: 20111010
  Serious: Yes (Death, Hospitalization, Other)
  Sender: FDA-Public Use
  Company Number: PHFR2008GB00615

PATIENT
  Sex: Female

DRUGS (7)
  1. ASPIRIN [Concomitant]
     Route: 065
  2. SIMVASTATIN [Concomitant]
     Route: 065
  3. RAMIPRIL [Concomitant]
     Route: 065
  4. CLOZAPINE [Suspect]
     Dosage: 475 MG PER DAY
     Route: 048
     Dates: start: 20070701
  5. CLOZAPINE [Suspect]
     Indication: SCHIZOPHRENIA
     Dosage: 500 MG PER DAY
     Route: 048
     Dates: start: 20040422, end: 20070701
  6. AMISULPRIDE [Concomitant]
     Route: 065
  7. VALPROATE SODIUM [Concomitant]
     Route: 065

REACTIONS (4)
  - DEATH [None]
  - MALAISE [None]
  - MENTAL IMPAIRMENT [None]
  - ANTIPSYCHOTIC DRUG LEVEL INCREASED [None]
